FAERS Safety Report 9290594 (Version 3)
Quarter: 2013Q2

REPORT INFORMATION
  Report Type: Report from Study
  Country: US (occurrence: US)
  Receive Date: 20130515
  Receipt Date: 20130524
  Transmission Date: 20140414
  Serious: Yes (Hospitalization)
  Sender: FDA-Public Use
  Company Number: US-JNJFOC-20130505014

PATIENT
  Age: 12 Year
  Sex: Female

DRUGS (15)
  1. REMICADE [Suspect]
     Indication: INFLAMMATORY BOWEL DISEASE
     Route: 042
     Dates: start: 20090706
  2. HUMIRA [Concomitant]
     Route: 065
     Dates: start: 20110421
  3. METHOTREXATE [Concomitant]
     Route: 065
  4. CALCIUM [Concomitant]
     Route: 065
  5. VITAMIN C [Concomitant]
     Route: 065
  6. VITAMIN D [Concomitant]
     Route: 065
  7. VITAMIN B COMPLEX [Concomitant]
     Route: 065
  8. FERROUS SULPHATE [Concomitant]
     Route: 065
  9. DIPHENHYDRAMINE [Concomitant]
     Route: 065
  10. LIDOCAINE [Concomitant]
     Route: 061
  11. SIMETHICONE [Concomitant]
     Route: 065
  12. NYSTATIN [Concomitant]
     Route: 061
  13. TRIAMCINOLONE ACETONIDE [Concomitant]
     Route: 065
  14. OXANDROLONE [Concomitant]
     Route: 065
  15. NYSTATIN-TRIAMCINOLONE [Concomitant]
     Route: 065

REACTIONS (1)
  - Malnutrition [Recovered/Resolved with Sequelae]
